FAERS Safety Report 10166031 (Version 2)
Quarter: 2014Q2

REPORT INFORMATION
  Report Type: Spontaneous
  Country: DE (occurrence: DE)
  Receive Date: 20140511
  Receipt Date: 20140511
  Transmission Date: 20141212
  Serious: Yes (Other)
  Sender: FDA-Public Use
  Company Number: DE-BRISTOL-MYERS SQUIBB COMPANY-20549432

PATIENT
  Age: 71 Year
  Sex: Female
  Weight: 71 kg

DRUGS (1)
  1. BYETTA PEN DISPOSABLE [Suspect]

REACTIONS (3)
  - Drug dispensing error [Unknown]
  - Product quality issue [Unknown]
  - Blood glucose abnormal [Unknown]
